FAERS Safety Report 9602337 (Version 1)
Quarter: 2013Q4

REPORT INFORMATION
  Report Type: Spontaneous
  Country: US (occurrence: US)
  Receive Date: 20131007
  Receipt Date: 20131007
  Transmission Date: 20140711
  Serious: No
  Sender: FDA-Public Use
  Company Number: US-GLAXOSMITHKLINE-A1033776A

PATIENT
  Age: 56 Year
  Sex: Female

DRUGS (6)
  1. BENLYSTA [Suspect]
     Indication: SYSTEMIC LUPUS ERYTHEMATOSUS
     Dosage: 400MG EVERY 28 DAYS
     Route: 042
     Dates: start: 20130413
  2. PLAQUENIL [Concomitant]
  3. CELLCEPT [Concomitant]
  4. SYNTHROID [Concomitant]
  5. CORTISONE CREAM [Concomitant]
  6. SOLUMEDROL [Concomitant]

REACTIONS (11)
  - Balance disorder [Unknown]
  - Confusional state [Unknown]
  - Pruritus [Recovering/Resolving]
  - Nausea [Not Recovered/Not Resolved]
  - Somnolence [Not Recovered/Not Resolved]
  - Migraine [Unknown]
  - Headache [Not Recovered/Not Resolved]
  - Cold sweat [Unknown]
  - Insomnia [Not Recovered/Not Resolved]
  - Tension [Not Recovered/Not Resolved]
  - Palpitations [Unknown]
